FAERS Safety Report 19437551 (Version 1)
Quarter: 2021Q2

REPORT INFORMATION
  Report Type: Spontaneous
  Country: US (occurrence: US)
  Receive Date: 20210619
  Receipt Date: 20210619
  Transmission Date: 20210717
  Serious: Yes (Death, Hospitalization, Other)
  Sender: FDA-Public Use
  Company Number: US-AUROBINDO-AUR-APL-2021-024484

PATIENT
  Age: 28 Year
  Sex: Female
  Weight: 70 kg

DRUGS (13)
  1. METHYLPREDNISOLONE. [Suspect]
     Active Substance: METHYLPREDNISOLONE
     Indication: PRODUCT USED FOR UNKNOWN INDICATION
     Dosage: 125 MILLIGRAM
     Route: 065
  2. METOCLOPRAMIDE. [Suspect]
     Active Substance: METOCLOPRAMIDE
     Indication: PRODUCT USED FOR UNKNOWN INDICATION
     Dosage: 5 MILLIGRAM
     Route: 065
  3. METHOCARBAMOL. [Suspect]
     Active Substance: METHOCARBAMOL
     Dosage: 750 MILLIGRAM, FOUR TIMES/DAY (#30)
     Route: 065
  4. VALDECOXIB [Suspect]
     Active Substance: VALDECOXIB
     Dosage: 10 MILLIGRAM, DAILY
     Route: 065
  5. CYCLOBENZAPRINE. [Suspect]
     Active Substance: CYCLOBENZAPRINE
     Indication: PRODUCT USED FOR UNKNOWN INDICATION
     Dosage: 10 MILLIGRAM (NIGHTLY#30)
     Route: 065
  6. IBUPROFEN. [Suspect]
     Active Substance: IBUPROFEN
     Dosage: 800 MILLIGRAM, 3 TIMES A DAY (#15)
     Route: 065
  7. METAXALONE. [Suspect]
     Active Substance: METAXALONE
     Indication: PRODUCT USED FOR UNKNOWN INDICATION
     Dosage: 800 MILLIGRAM, 3 TIMES A DAY (#15)
     Route: 065
  8. VALDECOXIB [Suspect]
     Active Substance: VALDECOXIB
     Dosage: 10 MILLIGRAM, DAILY
     Route: 065
  9. IBUPROFEN. [Suspect]
     Active Substance: IBUPROFEN
     Indication: LIGAMENT SPRAIN
     Dosage: 800 MILLIGRAM, 3 TIMES A DAY (#30)
     Route: 065
  10. IBUPROFEN. [Suspect]
     Active Substance: IBUPROFEN
     Indication: INJURY
     Dosage: 800 MILLIGRAM, 3 TIMES A DAY (#30)
     Route: 065
  11. IBUPROFEN. [Suspect]
     Active Substance: IBUPROFEN
     Dosage: UNK
     Route: 065
  12. METHOCARBAMOL. [Suspect]
     Active Substance: METHOCARBAMOL
     Indication: PRODUCT USED FOR UNKNOWN INDICATION
     Dosage: 750 MILLIGRAM, FOUR TIMES/DAY (#30)
     Route: 065
  13. VALDECOXIB [Suspect]
     Active Substance: VALDECOXIB
     Indication: PRODUCT USED FOR UNKNOWN INDICATION
     Dosage: 10 MILLIGRAM, DAILY (#30)
     Route: 065

REACTIONS (14)
  - Abdominal pain upper [Unknown]
  - Renal failure [Fatal]
  - Hypertension [Fatal]
  - Vomiting [Unknown]
  - Haemorrhage intracranial [Fatal]
  - Diabetes mellitus [Fatal]
  - Renal failure [Unknown]
  - Abdominal pain [Unknown]
  - Coma [Unknown]
  - Respiratory failure [Fatal]
  - Cardiomyopathy [Fatal]
  - Dizziness [Unknown]
  - Hyperventilation [Unknown]
  - Pain in extremity [Unknown]
